FAERS Safety Report 11471997 (Version 2)
Quarter: 2016Q1

REPORT INFORMATION
  Report Type: Spontaneous
  Country: JP (occurrence: JP)
  Receive Date: 20150908
  Receipt Date: 20160121
  Transmission Date: 20160525
  Serious: Yes (Death, Life-Threatening, Hospitalization, Other)
  Sender: FDA-Public Use
  Company Number: JP-B.I. PHARMACEUTICALS,INC./RIDGEFIELD-2015-BI-48313NB

PATIENT
  Age: 35 Year
  Sex: Female
  Weight: 56.9 kg

DRUGS (10)
  1. GILOTRIF [Suspect]
     Active Substance: AFATINIB
     Dosage: 40 MG
     Route: 048
     Dates: start: 20150608, end: 20150614
  2. OXYCONTIN [Concomitant]
     Active Substance: OXYCODONE HYDROCHLORIDE
     Indication: CANCER PAIN
     Dosage: 320 MG
     Route: 065
     Dates: start: 20150608, end: 20150614
  3. GILOTRIF [Suspect]
     Active Substance: AFATINIB
     Indication: LUNG NEOPLASM MALIGNANT
     Dosage: 40 MG
     Route: 048
     Dates: start: 201410, end: 20150215
  4. DENOTAS [Concomitant]
     Active Substance: CALCIUM CARBONATE\CHOLECALCIFEROL\MAGNESIUM CARBONATE
     Indication: HYPOCALCAEMIA
     Route: 065
     Dates: start: 20150611, end: 20150617
  5. ONEDURO [Concomitant]
     Active Substance: FENTANYL
     Indication: CANCER PAIN
     Dosage: 13.4 MG
     Route: 065
     Dates: start: 20150608, end: 20150614
  6. ASTOMIN [Concomitant]
     Active Substance: DIMEMORFAN
     Indication: PRODUCTIVE COUGH
     Dosage: 30 MG
     Route: 065
     Dates: start: 20150611, end: 20150617
  7. CARBOCISTEINE [Concomitant]
     Active Substance: CARBOCYSTEINE
     Indication: PRODUCTIVE COUGH
     Dosage: 1500 MG
     Route: 065
     Dates: start: 20150611, end: 20150617
  8. METHYCOBAL [Concomitant]
     Active Substance: METHYLCOBALAMIN
     Indication: NEUROPATHY PERIPHERAL
     Dosage: 1500 MG
     Route: 065
     Dates: start: 20150611, end: 20150617
  9. NEXIUM [Concomitant]
     Active Substance: ESOMEPRAZOLE MAGNESIUM
     Indication: GASTROOESOPHAGEAL REFLUX DISEASE
     Dosage: 20 MG
     Route: 065
     Dates: start: 20150611, end: 20150617
  10. HOKUNALIN [Concomitant]
     Active Substance: TULOBUTEROL
     Indication: PRODUCT USED FOR UNKNOWN INDICATION
     Dosage: 2 MG
     Route: 065
     Dates: start: 20150608, end: 20150614

REACTIONS (3)
  - Malignant neoplasm progression [Fatal]
  - Lymphangiosis carcinomatosa [Unknown]
  - Interstitial lung disease [Fatal]

NARRATIVE: CASE EVENT DATE: 20150613
